FAERS Safety Report 9088968 (Version 1)
Quarter: 2013Q1

REPORT INFORMATION
  Report Type: Spontaneous
  Country: US (occurrence: US)
  Receive Date: 20130201
  Receipt Date: 20130201
  Transmission Date: 20140127
  Serious: Yes (Other)
  Sender: FDA-Public Use
  Company Number: CHPA2013US001739

PATIENT
  Age: 74 Year
  Sex: Male

DRUGS (2)
  1. GAS-X EXTRA STRENGTH SOFTGELS [Suspect]
     Indication: FLATULENCE
     Dosage: UNDER 4 PILLS PER DAY
     Route: 048
     Dates: start: 2012
  2. BEANO [Concomitant]
     Indication: FLATULENCE
     Dosage: UNK
     Route: 048
     Dates: start: 201301

REACTIONS (3)
  - Cardiac murmur [Not Recovered/Not Resolved]
  - Heart rate irregular [Not Recovered/Not Resolved]
  - Drug ineffective [Unknown]
